FAERS Safety Report 8222788-4 (Version None)
Quarter: 2012Q1

REPORT INFORMATION
  Report Type: 
  Country: None (occurrence: None)
  Receive Date: 20120320
  Receipt Date: 20120313
  Transmission Date: 20120608
  Serious: Yes (Other)
  Sender: FDA-Public Use
  Company Number: JP-B.I. PHARMACEUTICALS,INC./RIDGEFIELD-2012-BP-04815NB

PATIENT

DRUGS (1)
  1. BI-SIFROL TABLETS [Suspect]
     Dosage: 1.5 MG
     Route: 065

REACTIONS (1)
  - INTERSTITIAL LUNG DISEASE [None]
